FAERS Safety Report 25042264 (Version 1)
Quarter: 2025Q1

REPORT INFORMATION
  Report Type: Spontaneous
  Country: US (occurrence: US)
  Receive Date: 20250305
  Receipt Date: 20250305
  Transmission Date: 20250408
  Serious: Yes (Other)
  Sender: DR REDDYS
  Company Number: US-DRL-USA-USA/2025/02/003195

PATIENT
  Age: 75 Year
  Sex: Male

DRUGS (6)
  1. PRIMIDONE [Suspect]
     Active Substance: PRIMIDONE
     Indication: Orthostatic tremor
  2. VALPROIC ACID [Suspect]
     Active Substance: VALPROIC ACID
     Indication: Orthostatic tremor
  3. GABAPENTIN [Concomitant]
     Active Substance: GABAPENTIN
     Indication: Orthostatic tremor
  4. ACETAZOLAMIDE [Concomitant]
     Active Substance: ACETAZOLAMIDE
     Indication: Orthostatic tremor
  5. TOPIRAMATE [Concomitant]
     Active Substance: TOPIRAMATE
     Indication: Orthostatic tremor
  6. CLONAZEPAM [Concomitant]
     Active Substance: CLONAZEPAM
     Indication: Orthostatic tremor

REACTIONS (1)
  - Drug ineffective for unapproved indication [Unknown]
